FAERS Safety Report 13372870 (Version 1)
Quarter: 2017Q1

REPORT INFORMATION
  Report Type: Spontaneous
  Country: US (occurrence: US)
  Receive Date: 20170325
  Receipt Date: 20170325
  Transmission Date: 20170429
  Serious: Yes (Disabling)
  Sender: FDA-Public Use
  Company Number: None

PATIENT
  Age: 56 Year
  Sex: Female
  Weight: 78.75 kg

DRUGS (12)
  1. POLYPHENOL BLEND [Concomitant]
  2. ATENOLOL. [Concomitant]
     Active Substance: ATENOLOL
  3. DULOXETINE. [Concomitant]
     Active Substance: DULOXETINE
  4. SUDAFED [Concomitant]
     Active Substance: PSEUDOEPHEDRINE HYDROCHLORIDE
  5. LEVOTHYROXINE. [Concomitant]
     Active Substance: LEVOTHYROXINE
  6. VITAMIN B COMPLEX [Concomitant]
     Active Substance: CYANOCOBALAMIN\DEXPANTHENOL\NIACINAMIDE\PYRIDOXINE HYDROCHLORIDE\RIBOFLAVIN 5^-PHOSPHATE SODIUM\THIAMINE HYDROCHLORIDE\VITAMIN B COMPLEX
  7. LEVOFLOXACIN. [Suspect]
     Active Substance: LEVOFLOXACIN
     Indication: PNEUMONIA
     Dosage: ?          QUANTITY:1 TABLET(S);?
     Route: 048
     Dates: start: 20161004, end: 20161010
  8. MORPHINE [Concomitant]
     Active Substance: MORPHINE
  9. MAGNESIUM [Concomitant]
     Active Substance: MAGNESIUM
  10. DAILY VITAMIN [Concomitant]
     Active Substance: VITAMINS
  11. GABAPENTIN. [Concomitant]
     Active Substance: GABAPENTIN
  12. BIOTIN [Concomitant]
     Active Substance: BIOTIN

REACTIONS (18)
  - Arthralgia [None]
  - Bedridden [None]
  - Myalgia [None]
  - Back pain [None]
  - Headache [None]
  - Dysstasia [None]
  - Joint lock [None]
  - Neuropathy peripheral [None]
  - Fatigue [None]
  - Pain in extremity [None]
  - Dizziness [None]
  - Burning sensation [None]
  - Tendon pain [None]
  - Vision blurred [None]
  - Nausea [None]
  - Sleep disorder [None]
  - Musculoskeletal pain [None]
  - Antinuclear antibody increased [None]

NARRATIVE: CASE EVENT DATE: 20161004
